FAERS Safety Report 7585579-3 (Version None)
Quarter: 2011Q2

REPORT INFORMATION
  Report Type: 
  Country: None (occurrence: None)
  Receive Date: 20110628
  Receipt Date: 20110628
  Transmission Date: 20111010
  Serious: Yes (Hospitalization)
  Sender: FDA-Public Use
  Company Number: None

PATIENT
  Sex: Female
  Weight: 45.5 kg

DRUGS (2)
  1. FOSAMAX [Suspect]
     Dosage: DAILY THEN WEEKLY ETC ORAL F
     Route: 048
  2. ACTONEL [Suspect]
     Dosage: MONTHLY ORAL
     Route: 048

REACTIONS (4)
  - FALL [None]
  - STRESS FRACTURE [None]
  - FOOT FRACTURE [None]
  - FEMUR FRACTURE [None]
